FAERS Safety Report 16755992 (Version 1)
Quarter: 2019Q3

REPORT INFORMATION
  Report Type: Report from Study
  Country: IE (occurrence: IE)
  Receive Date: 20190829
  Receipt Date: 20190829
  Transmission Date: 20191005
  Serious: Yes (Other)
  Sender: FDA-Public Use
  Company Number: IE-JNJFOC-20190831576

PATIENT
  Age: 58 Year
  Sex: Female

DRUGS (8)
  1. ZOTON [Concomitant]
     Active Substance: LANSOPRAZOLE
     Route: 050
  2. XALATAN [Concomitant]
     Active Substance: LATANOPROST
     Route: 050
  3. LISINOPRIL. [Concomitant]
     Active Substance: LISINOPRIL
     Route: 050
  4. STELARA [Suspect]
     Active Substance: USTEKINUMAB
     Route: 058
     Dates: start: 20190524
  5. LISINOPRIL. [Concomitant]
     Active Substance: LISINOPRIL
     Route: 050
  6. LEVOCETIRIZINE DIHYDROCHLORIDE. [Concomitant]
     Active Substance: LEVOCETIRIZINE DIHYDROCHLORIDE
     Dosage: PRN (AS REQUIRED)
     Route: 050
  7. MIRABEGRON [Concomitant]
     Active Substance: MIRABEGRON
     Route: 050
  8. STELARA [Suspect]
     Active Substance: USTEKINUMAB
     Indication: PSORIATIC ARTHROPATHY
     Route: 058
     Dates: start: 20190124

REACTIONS (2)
  - Lower respiratory tract infection [Not Recovered/Not Resolved]
  - Pain in extremity [Not Recovered/Not Resolved]

NARRATIVE: CASE EVENT DATE: 201907
